FAERS Safety Report 12981285 (Version 3)
Quarter: 2017Q3

REPORT INFORMATION
  Report Type: Spontaneous
  Country: DE (occurrence: DE)
  Receive Date: 20161129
  Receipt Date: 20170928
  Transmission Date: 20171127
  Serious: Yes (Death, Life-Threatening, Other)
  Sender: FDA-Public Use
  Company Number: DE-BRISTOL-MYERS SQUIBB COMPANY-BMS-2016-094162

PATIENT
  Age: 72 Year
  Sex: Male

DRUGS (1)
  1. OPDIVO [Suspect]
     Active Substance: NIVOLUMAB
     Indication: RENAL CELL CARCINOMA
     Dosage: UNAV.
     Route: 065
     Dates: start: 201605

REACTIONS (25)
  - Amyloidosis [Fatal]
  - Acute kidney injury [Unknown]
  - Arteriosclerosis coronary artery [Unknown]
  - Megacolon [Unknown]
  - Echo virus infection [Unknown]
  - Clostridium difficile infection [Unknown]
  - Pneumonia [Unknown]
  - Vascular compression [Unknown]
  - Ileus paralytic [Unknown]
  - Metabolic acidosis [Unknown]
  - Autoimmune colitis [Fatal]
  - Infection [Fatal]
  - Peripheral ischaemia [Unknown]
  - Staphylococcal infection [Unknown]
  - Enterococcal infection [Unknown]
  - Hyperkinetic heart syndrome [Unknown]
  - Ascites [Unknown]
  - Pseudomonas infection [Unknown]
  - Nephrotic syndrome [Unknown]
  - Pleural effusion [Unknown]
  - Malignant neoplasm progression [Fatal]
  - Cardiac failure [Unknown]
  - Hepatic steatosis [Unknown]
  - Stenotrophomonas infection [Unknown]
  - Gallbladder disorder [Unknown]

NARRATIVE: CASE EVENT DATE: 20161029
